FAERS Safety Report 4584401-7 (Version None)
Quarter: 2005Q1

REPORT INFORMATION
  Report Type: 
  Country: None (occurrence: None)
  Receive Date: 20050125
  Receipt Date: 20040917
  Transmission Date: 20050727
  Serious: Yes (Hospitalization)
  Sender: FDA-Public Use
  Company Number: US_000949405

PATIENT
  Age: 64 Year
  Sex: Female
  Weight: 60 kg

DRUGS (21)
  1. EVISTA [Suspect]
     Indication: OSTEOPOROSIS
     Dosage: 60 MG/1 DAY
     Dates: start: 19980801, end: 20040401
  2. FORTEO [Suspect]
     Indication: OSTEOPOROSIS
     Dosage: 20 UG/1 DAY
     Dates: start: 20040624
  3. DARVOCET-N 100 [Concomitant]
  4. MIACALCIN [Concomitant]
  5. ASPIRIN [Concomitant]
  6. AVAPRO [Concomitant]
  7. RANITIDINE [Concomitant]
  8. PREMARIN [Concomitant]
  9. ZOCOR [Concomitant]
  10. ZYRTEC [Concomitant]
  11. LIBRAX [Concomitant]
  12. URISED [Concomitant]
  13. BETHANECHOL [Concomitant]
  14. ATENOLOL [Concomitant]
  15. PROCARDIA [Concomitant]
  16. NEXIUM [Concomitant]
  17. ULTRAM [Concomitant]
  18. ASTELIN [Concomitant]
  19. VIACTIV [Concomitant]
  20. MIACALCIN [Concomitant]
  21. CALCIUM AND VITAMIN D [Concomitant]

REACTIONS (31)
  - ABDOMINAL PAIN [None]
  - ABDOMINAL PAIN UPPER [None]
  - ARTHRALGIA [None]
  - ASTHENIA [None]
  - BODY HEIGHT DECREASED [None]
  - BONE PAIN [None]
  - DIFFICULTY IN WALKING [None]
  - DIVERTICULITIS [None]
  - DIZZINESS [None]
  - FALL [None]
  - FUNGAL INFECTION [None]
  - GASTRITIS [None]
  - GENITAL DISORDER FEMALE [None]
  - HEADACHE [None]
  - HOT FLUSH [None]
  - INJECTION SITE ERYTHEMA [None]
  - INJECTION SITE IRRITATION [None]
  - INJECTION SITE PAIN [None]
  - INSOMNIA [None]
  - MIGRAINE [None]
  - MUSCLE SPASMS [None]
  - MYALGIA [None]
  - NIGHT SWEATS [None]
  - OESOPHAGEAL DISORDER [None]
  - OSTEOARTHRITIS [None]
  - PAIN IN EXTREMITY [None]
  - RENAL FAILURE [None]
  - URINARY TRACT INFECTION [None]
  - VAGINAL INFECTION [None]
  - WEIGHT DECREASED [None]
  - WEIGHT INCREASED [None]
